FAERS Safety Report 10280396 (Version 1)
Quarter: 2014Q3

REPORT INFORMATION
  Report Type: Spontaneous
  Country: US (occurrence: None)
  Receive Date: 20140701
  Receipt Date: 20140701
  Transmission Date: 20150326
  Serious: No
  Sender: FDA-Public Use
  Company Number: None

PATIENT
  Age: 38 Year
  Sex: Female
  Weight: 49.9 kg

DRUGS (1)
  1. PROPRANOLOL 20 PLIVA [Suspect]
     Active Substance: PROPRANOLOL HYDROCHLORIDE
     Indication: TACHYCARDIA
     Dosage: 2 TABLETS?TWICE DAILY?TAKEN BY MOUTH
     Route: 048
     Dates: start: 20140427, end: 20140625

REACTIONS (11)
  - Pyrexia [None]
  - Abasia [None]
  - Thyroiditis [None]
  - Tremor [None]
  - Nervousness [None]
  - Cough [None]
  - Heart rate [None]
  - Product substitution issue [None]
  - Dyspepsia [None]
  - Productive cough [None]
  - Cognitive disorder [None]

NARRATIVE: CASE EVENT DATE: 20140427
